FAERS Safety Report 7425282-3 (Version None)
Quarter: 2011Q2

REPORT INFORMATION
  Report Type: 
  Country: None (occurrence: None)
  Receive Date: 20110414
  Receipt Date: 20110328
  Transmission Date: 20111010
  Serious: Yes (Hospitalization)
  Sender: FDA-Public Use
  Company Number: 201000643

PATIENT
  Age: 72 Year
  Sex: Female

DRUGS (9)
  1. INDERON-VG (VALISONE-G) [Concomitant]
  2. HACHIAZULE (HACHIAZULE) [Concomitant]
  3. HYALURONATE SODIUM (HYALURONATE SODIUM) [Concomitant]
  4. HIRUDOID(HEPARTNOID) R [Concomitant]
  5. ERLOTINIBN(ERLOTINIB) (TABLET) (ERLOTINIB) [Suspect]
     Indication: NON-SMALL CELL LUNG CANCER
     Dosage: (150 MG,L IN 1 D),ORAL
     Route: 048
     Dates: start: 20101006
  6. FLUVASTATIN [Concomitant]
  7. KARY UNI (PIRENOXINE) [Concomitant]
  8. LIDOMEX (PREDNISOLONE VALEROACETATE) [Concomitant]
  9. ANTEBATE (BETAMETHASONE BUTYRATE PROPIONATE) [Concomitant]

REACTIONS (3)
  - RASH [None]
  - RETINAL DETACHMENT [None]
  - CONDITION AGGRAVATED [None]
